FAERS Safety Report 17846365 (Version 2)
Quarter: 2020Q2

REPORT INFORMATION
  Report Type: Spontaneous
  Country: US (occurrence: US)
  Receive Date: 20200601
  Receipt Date: 20200604
  Transmission Date: 20200714
  Serious: No
  Sender: FDA-Public Use
  Company Number: US-ASTRAZENECA-2020SE64195

PATIENT
  Sex: Male
  Weight: 99.8 kg

DRUGS (4)
  1. BYDUREON [Suspect]
     Active Substance: EXENATIDE
     Indication: DIABETES MELLITUS
     Route: 058
  2. BYDUREON BCISE [Suspect]
     Active Substance: EXENATIDE
     Indication: DIABETES MELLITUS
     Route: 058
  3. ACTOS [Concomitant]
     Active Substance: PIOGLITAZONE HYDROCHLORIDE
  4. JARDIANCE [Concomitant]
     Active Substance: EMPAGLIFLOZIN

REACTIONS (9)
  - Nausea [Unknown]
  - Product dose omission [Unknown]
  - Liver disorder [Unknown]
  - Intentional device misuse [Unknown]
  - Pancreatic disorder [Unknown]
  - Device issue [Unknown]
  - Glycosylated haemoglobin increased [Unknown]
  - Blood cholesterol abnormal [Unknown]
  - Abdominal discomfort [Unknown]
